FAERS Safety Report 4688484-5 (Version None)
Quarter: 2005Q2

REPORT INFORMATION
  Report Type: 
  Country: None (occurrence: None)
  Receive Date: 20050609
  Receipt Date: 20050209
  Transmission Date: 20051028
  Serious: Yes (Other)
  Sender: FDA-Public Use
  Company Number: 230024K05BRA

PATIENT
  Sex: Female

DRUGS (7)
  1. REBIF [Suspect]
     Dosage: SEE IMAGE
     Dates: start: 20011114, end: 20020101
  2. REBIF [Suspect]
     Dosage: SEE IMAGE
     Dates: start: 20020101
  3. FLUOXETINE [Concomitant]
  4. CLONAZEPAM [Concomitant]
  5. AMANTADINE HCL [Concomitant]
  6. HYDROXYZINE HYDROCHLORIDE [Concomitant]
  7. LORATADINE [Concomitant]

REACTIONS (2)
  - BLOOD CHOLESTEROL INCREASED [None]
  - MYOCARDIAL ISCHAEMIA [None]
